FAERS Safety Report 21344258 (Version 1)
Quarter: 2022Q3

REPORT INFORMATION
  Report Type: Spontaneous
  Country: CN (occurrence: CN)
  Receive Date: 20220916
  Receipt Date: 20220916
  Transmission Date: 20221027
  Serious: Yes (Other)
  Sender: FDA-Public Use
  Company Number: CN-PFIZER INC-PV202200063796

PATIENT
  Age: 9 Year
  Sex: Male

DRUGS (1)
  1. METHOTREXATE SODIUM [Suspect]
     Active Substance: METHOTREXATE SODIUM
     Indication: Neoplasm malignant
     Dosage: 500 MG, 1X/DAY
     Route: 041
     Dates: start: 20220823, end: 20220823

REACTIONS (6)
  - Erythema [Recovered/Resolved]
  - Ear swelling [Recovered/Resolved]
  - Pruritus [Recovered/Resolved]
  - Dysphoria [Recovered/Resolved]
  - Papule [Recovered/Resolved]
  - Rash [Recovered/Resolved]

NARRATIVE: CASE EVENT DATE: 20220823
